FAERS Safety Report 23842115 (Version 1)
Quarter: 2024Q2

REPORT INFORMATION
  Report Type: Report from Study
  Country: DE (occurrence: DE)
  Receive Date: 20240510
  Receipt Date: 20240510
  Transmission Date: 20240716
  Serious: Yes (Hospitalization)
  Sender: FDA-Public Use
  Company Number: DE-009507513-2404DEU005994

PATIENT
  Sex: Male
  Weight: 88 kg

DRUGS (10)
  1. PEMBROLIZUMAB [Suspect]
     Active Substance: PEMBROLIZUMAB
     Indication: Product used for unknown indication
     Dosage: 750 MILLIGRAM, LAST DOSE PRIOR TO EVENT
     Route: 065
     Dates: start: 20240124
  2. PEMBROLIZUMAB [Suspect]
     Active Substance: PEMBROLIZUMAB
     Dosage: 750 MILLIGRAM, 1ST LINE
     Route: 065
     Dates: start: 20231018
  3. CARBOPLATIN [Suspect]
     Active Substance: CARBOPLATIN
     Indication: Product used for unknown indication
     Dosage: 322 MILLIGRAM, 1ST LINE
     Route: 065
     Dates: start: 20231206, end: 20231206
  4. PEMBROLIZUMAB [Suspect]
     Active Substance: PEMBROLIZUMAB
     Indication: Non-small cell lung cancer
     Dosage: 200 MILLIGRAM,  LAST DOSE PRIOR TO EVENT|
     Route: 065
     Dates: start: 20240124
  5. PEMBROLIZUMAB [Suspect]
     Active Substance: PEMBROLIZUMAB
     Dosage: 200 MILLIGRAM, 1ST LINE
     Route: 065
     Dates: start: 20230927
  6. PANTOPRAZOLE [Concomitant]
     Active Substance: PANTOPRAZOLE
     Dosage: 40 MILLIGRAM, QD
     Route: 048
  7. TIOTROPIUM [Concomitant]
     Active Substance: TIOTROPIUM
     Dosage: 10 DOSAGE FORM, TOTAL, QD
     Route: 055
  8. DIETARY SUPPLEMENT [Concomitant]
     Active Substance: DIETARY SUPPLEMENT
     Dosage: 48 DOSAGE FORM, QD, 24 DOSAGE FORM, BID
     Route: 048
     Dates: start: 202402
  9. FORMOTEROL [Concomitant]
     Active Substance: FORMOTEROL
     Dosage: 12 DOSAGE FORM, QD, 6 DOSAGE FORM, BID
     Route: 055
  10. TORSEMIDE [Concomitant]
     Active Substance: TORSEMIDE
     Dosage: 10 MILLIGRAM, BID
     Route: 048

REACTIONS (3)
  - Anaemia [Recovered/Resolved]
  - General physical health deterioration [Unknown]
  - Hypophagia [Unknown]

NARRATIVE: CASE EVENT DATE: 20240221
